FAERS Safety Report 6879716-3 (Version None)
Quarter: 2010Q3

REPORT INFORMATION
  Report Type: 
  Country: None (occurrence: None)
  Receive Date: 20100728
  Receipt Date: 20100716
  Transmission Date: 20110219
  Serious: Yes (Hospitalization)
  Sender: FDA-Public Use
  Company Number: US-ELI_LILLY_AND_COMPANY-US201007004632

PATIENT
  Sex: Male

DRUGS (4)
  1. BYETTA [Suspect]
     Dosage: 5 UG, UNKNOWN
     Dates: start: 20100122, end: 20100317
  2. BYETTA [Suspect]
     Dosage: 10 UG, UNKNOWN
     Dates: start: 20100317, end: 20100707
  3. ACTOS /SCH/ [Concomitant]
     Dosage: 15 MG, UNK
  4. METFORMIN HCL [Concomitant]

REACTIONS (2)
  - PANCREATIC MASS [None]
  - WEIGHT DECREASED [None]
